FAERS Safety Report 22342023 (Version 2)
Quarter: 2023Q2

REPORT INFORMATION
  Report Type: Report from Study
  Country: CA (occurrence: CA)
  Receive Date: 20230518
  Receipt Date: 20230526
  Transmission Date: 20230722
  Serious: Yes (Death, Hospitalization, Other)
  Sender: FDA-Public Use
  Company Number: CA-ABBVIE-4771621

PATIENT
  Age: 87 Year
  Sex: Male

DRUGS (1)
  1. LUPRON DEPOT [Suspect]
     Active Substance: LEUPROLIDE ACETATE
     Indication: Prostate cancer
     Route: 030
     Dates: start: 20220801

REACTIONS (36)
  - Sepsis [Fatal]
  - Haematemesis [Unknown]
  - Atelectasis [Unknown]
  - Neutropenia [Unknown]
  - Asthenia [Unknown]
  - Cognitive disorder [Unknown]
  - Prostate cancer [Unknown]
  - Arthritis [Recovered/Resolved]
  - Aspiration pleural cavity [Unknown]
  - Palliative care [Unknown]
  - Bowel movement irregularity [Unknown]
  - Clostridium difficile infection [Unknown]
  - Blood iron decreased [Unknown]
  - Chromaturia [Unknown]
  - Respiratory failure [Recovering/Resolving]
  - Hypoalbuminaemia [Unknown]
  - Blood albumin decreased [Unknown]
  - Haematoma muscle [Unknown]
  - Septic shock [Recovered/Resolved]
  - Gastrointestinal haemorrhage [Unknown]
  - Haemorrhagic stroke [Unknown]
  - Pleural effusion [Unknown]
  - Splenic infarction [Unknown]
  - Hypoxia [Unknown]
  - Pain [Unknown]
  - Thrombosis [Unknown]
  - Colitis [Unknown]
  - Deep vein thrombosis [Unknown]
  - Mobility decreased [Unknown]
  - Urosepsis [Unknown]
  - Hypophagia [Unknown]
  - Laboratory test abnormal [Unknown]
  - Acute kidney injury [Unknown]
  - Mobility decreased [Unknown]
  - Hypotension [Unknown]
  - Pancytopenia [Unknown]

NARRATIVE: CASE EVENT DATE: 20230214
